FAERS Safety Report 18431927 (Version 2)
Quarter: 2020Q4

REPORT INFORMATION
  Report Type: Spontaneous
  Country: US (occurrence: US)
  Receive Date: 20201027
  Receipt Date: 20201130
  Transmission Date: 20210114
  Serious: No
  Sender: FDA-Public Use
  Company Number: US-JNJFOC-20201039428

PATIENT
  Age: 33 Year
  Sex: Female
  Weight: 68.1 kg

DRUGS (1)
  1. TREMFYA [Suspect]
     Active Substance: GUSELKUMAB
     Indication: PRODUCT USED FOR UNKNOWN INDICATION
     Route: 058

REACTIONS (2)
  - Product dose omission issue [Unknown]
  - Drug delivery system malfunction [Unknown]

NARRATIVE: CASE EVENT DATE: 20201019
